FAERS Safety Report 10594262 (Version 1)
Quarter: 2014Q4

REPORT INFORMATION
  Report Type: Spontaneous
  Country: BR (occurrence: BR)
  Receive Date: 20141119
  Receipt Date: 20141119
  Transmission Date: 20150529
  Serious: Yes (Hospitalization)
  Sender: FDA-Public Use
  Company Number: BR-B.I. PHARMACEUTICALS,INC./RIDGEFIELD-2014-BI-55258BR

PATIENT
  Age: 78 Year
  Sex: Female

DRUGS (6)
  1. MEDICATION FOR ARTHROSIS [Concomitant]
     Indication: OSTEOARTHRITIS
     Route: 065
  2. PRADAXA [Suspect]
     Active Substance: DABIGATRAN ETEXILATE MESYLATE
     Indication: ATRIAL FIBRILLATION
  3. MEDICATION FOR DIABETES TYPE II [Concomitant]
     Indication: TYPE 2 DIABETES MELLITUS
     Route: 065
  4. PRADAXA [Suspect]
     Active Substance: DABIGATRAN ETEXILATE MESYLATE
     Indication: CEREBROVASCULAR ACCIDENT PROPHYLAXIS
     Dosage: 110 MG
     Route: 048
     Dates: start: 201311, end: 20141112
  5. MEDICATION FOR DYSLIPIDEMIA [Concomitant]
     Indication: DYSLIPIDAEMIA
     Route: 065
  6. MEDICATION FOR HYPERTENSION [Concomitant]
     Indication: HYPERTENSION
     Route: 065

REACTIONS (3)
  - Oedema peripheral [Not Recovered/Not Resolved]
  - Deep vein thrombosis [Not Recovered/Not Resolved]
  - Pain in extremity [Not Recovered/Not Resolved]

NARRATIVE: CASE EVENT DATE: 20141101
